FAERS Safety Report 8819466 (Version 1)
Quarter: 2012Q4

REPORT INFORMATION
  Report Type: 
  Country: DE (occurrence: DE)
  Receive Date: 20121001
  Receipt Date: 20121001
  Transmission Date: 20130627
  Serious: Yes (Other)
  Sender: FDA-Public Use
  Company Number: DE-AMGEN-DEUSP2012060892

PATIENT
  Sex: Female

DRUGS (3)
  1. ENBREL [Suspect]
     Indication: PRODUCT USED FOR UNKNOWN INDICATION
     Dosage: 50 mg, weekly
     Route: 058
     Dates: start: 20111101, end: 20120829
  2. CALCIGEN [Concomitant]
     Dosage: UNK
  3. CORTISONE [Concomitant]
     Dosage: UNK

REACTIONS (1)
  - Herpes ophthalmic [Not Recovered/Not Resolved]
